FAERS Safety Report 4517930-2 (Version None)
Quarter: 2004Q4

REPORT INFORMATION
  Report Type: 
  Country: None (occurrence: None)
  Receive Date: 20041130
  Receipt Date: 20041118
  Transmission Date: 20050328
  Serious: Yes (Other)
  Sender: FDA-Public Use
  Company Number: 200410610BYL

PATIENT
  Age: 77 Year
  Sex: Male

DRUGS (11)
  1. ADALAT CC [Suspect]
     Dosage: 20 MG, BID, ORAL
     Route: 048
     Dates: start: 19980501, end: 20040917
  2. EPHEDRA TEAS [Concomitant]
  3. DOGMATYL [Concomitant]
  4. AMOXAN [Concomitant]
  5. ANAFRANIL [Concomitant]
  6. SENIRAN [Concomitant]
  7. EVAMYL [Concomitant]
  8. TRYPTANOL [Concomitant]
  9. WARFARIN SODIUM [Concomitant]
  10. PARAMIDIN [Concomitant]
  11. LASIX [Concomitant]

REACTIONS (1)
  - GINGIVAL BLEEDING [None]
